FAERS Safety Report 19560354 (Version 1)
Quarter: 2021Q3

REPORT INFORMATION
  Report Type: Spontaneous
  Country: US (occurrence: US)
  Receive Date: 20210715
  Receipt Date: 20210715
  Transmission Date: 20211014
  Serious: Yes (Death)
  Sender: FDA-Public Use
  Company Number: None

PATIENT
  Age: 90 Year
  Sex: Female

DRUGS (1)
  1. REVLIMID [Suspect]
     Active Substance: LENALIDOMIDE
     Indication: CHRONIC LYMPHOCYTIC LEUKAEMIA
     Route: 048
     Dates: start: 20201026, end: 20210715

REACTIONS (8)
  - Cough [None]
  - Vomiting [None]
  - Cardiac failure congestive [None]
  - Confusional state [None]
  - Troponin increased [None]
  - Deep vein thrombosis [None]
  - Rectal haemorrhage [None]
  - Pulmonary embolism [None]

NARRATIVE: CASE EVENT DATE: 20210715
